FAERS Safety Report 8255960-8 (Version None)
Quarter: 2012Q2

REPORT INFORMATION
  Report Type: 
  Country: None (occurrence: None)
  Receive Date: 20120403
  Receipt Date: 20120320
  Transmission Date: 20120825
  Serious: Yes (Other)
  Sender: FDA-Public Use
  Company Number: US-ROCHE-1051075

PATIENT
  Sex: Male
  Weight: 65.83 kg

DRUGS (6)
  1. NEXIUM [Concomitant]
     Route: 048
  2. PROCHLORPERAZINE [Concomitant]
     Indication: NAUSEA
     Route: 048
  3. AVASTIN [Suspect]
     Indication: COLORECTAL CANCER METASTATIC
     Route: 042
     Dates: start: 20120312
  4. XELODA [Suspect]
     Indication: COLORECTAL CANCER METASTATIC
     Dates: start: 20120312
  5. OXALIPLATIN [Concomitant]
     Indication: COLORECTAL CANCER METASTATIC
     Route: 042
  6. MAALOX TC [Concomitant]
     Indication: DYSPEPSIA
     Route: 048

REACTIONS (9)
  - PARAESTHESIA [None]
  - TRISMUS [None]
  - DIARRHOEA [None]
  - DYSPNOEA [None]
  - DYSPEPSIA [None]
  - FATIGUE [None]
  - ANXIETY [None]
  - FEELING ABNORMAL [None]
  - TEMPERATURE INTOLERANCE [None]
